FAERS Safety Report 4464825-9 (Version None)
Quarter: 2004Q4

REPORT INFORMATION
  Report Type: 
  Country: None (occurrence: None)
  Receive Date: 20041004
  Receipt Date: 20031007
  Transmission Date: 20050328
  Serious: No
  Sender: FDA-Public Use
  Company Number: 354370

PATIENT
  Age: 74 Year
  Sex: Female

DRUGS (9)
  1. COREG [Suspect]
     Dosage: 12.5MG TWICE PER DAY
     Route: 048
     Dates: start: 20030401
  2. PLAVIX [Concomitant]
  3. CATAPRES [Concomitant]
  4. FOLIC ACID [Concomitant]
  5. ASPIRIN [Concomitant]
  6. ZOCOR [Concomitant]
  7. NEXIUM [Concomitant]
  8. MULTI-VITAMIN [Concomitant]
  9. PAXIL [Concomitant]

REACTIONS (4)
  - FATIGUE [None]
  - GOUT [None]
  - MYALGIA [None]
  - RHINORRHOEA [None]
